FAERS Safety Report 12746049 (Version 3)
Quarter: 2016Q3

REPORT INFORMATION
  Report Type: Spontaneous
  Country: FR (occurrence: FR)
  Receive Date: 20160915
  Receipt Date: 20160929
  Transmission Date: 20161109
  Serious: Yes (Hospitalization, Other)
  Sender: FDA-Public Use
  Company Number: FR-PFIZER INC-2016423676

PATIENT
  Age: 22 Year
  Sex: Female

DRUGS (19)
  1. HYDROCORTISONE. [Suspect]
     Active Substance: HYDROCORTISONE
     Dosage: 20 MG/24H, UNK
     Dates: start: 20160810
  2. ALPRAZOLAM. [Suspect]
     Active Substance: ALPRAZOLAM
     Dosage: 1 DF, UNK
     Dates: start: 20160801
  3. ALPRAZOLAM. [Suspect]
     Active Substance: ALPRAZOLAM
     Dosage: UNK
     Dates: end: 20160811
  4. UVEDOSE [Concomitant]
     Active Substance: CHOLECALCIFEROL
     Dosage: 100000 IU, WEEKLY
     Dates: end: 20160729
  5. FORCAPIL [Concomitant]
     Active Substance: BIOTIN\CALCIUM PANTOTHENATE\CYSTINE\MAGNESIUM PIDOLATE\METHIONINE\PYRIDOXINE
     Indication: SUPPLEMENTATION THERAPY
     Dosage: 2 DF, 1X/DAY
     Dates: end: 20160729
  6. MINIDRIL [Concomitant]
     Active Substance: ETHINYL ESTRADIOL\LEVONORGESTREL
     Indication: CONTRACEPTION
     Dosage: ETHINYLESTRADIOL 30 MICROGR/ LEVONORGESTREL 150 MICROGR
     Dates: end: 20160729
  7. ALPRAZOLAM. [Suspect]
     Active Substance: ALPRAZOLAM
     Dosage: 1 DF, UNK
     Dates: start: 20160810
  8. IMUREL /00001501/ [Suspect]
     Active Substance: AZATHIOPRINE SODIUM
     Indication: CROHN^S DISEASE
     Dosage: 100 MG, DAILY (50 MGX2, IN MORNING)
     Route: 048
     Dates: start: 20160426, end: 20160810
  9. OLIMEL E [Suspect]
     Active Substance: AMINO ACIDS\DEXTROSE\ELECTROLYTES NOS\SOYBEAN OIL
     Indication: PARENTERAL NUTRITION
     Dosage: 1500 ML, 3 DAYS PER WEEK
     Route: 042
     Dates: start: 201602, end: 20160803
  10. MORPHINE RENAUDIN [Suspect]
     Active Substance: MORPHINE
     Indication: PAIN
     Dosage: 40 MG, DAILY IN IV DRIP + 4 MG IN IV BOLUS IF NEEDED
     Route: 042
     Dates: start: 20160801, end: 20160804
  11. AUGMENTIN [Suspect]
     Active Substance: AMOXICILLIN\CLAVULANATE POTASSIUM
     Indication: CHOLECYSTITIS
     Dosage: 1 DF, 3X/DAY
     Route: 048
     Dates: start: 20160802, end: 20160810
  12. MORPHINE RENAUDIN [Suspect]
     Active Substance: MORPHINE
     Dosage: 4 MG, AS NEEDED
     Route: 042
     Dates: start: 20160801, end: 20160804
  13. LYRICA [Suspect]
     Active Substance: PREGABALIN
     Dosage: 100 MG, 2X/DAY
     Route: 048
     Dates: start: 201604, end: 20160812
  14. HYDROCORTISONE. [Suspect]
     Active Substance: HYDROCORTISONE
     Dosage: 30 MG, 1X/DAY
     Route: 048
     Dates: start: 201602, end: 20160810
  15. STILNOX [Suspect]
     Active Substance: ZOLPIDEM TARTRATE
     Dosage: UNK
     Route: 048
     Dates: end: 20160809
  16. SKENAN [Suspect]
     Active Substance: MORPHINE SULFATE
     Indication: PAIN
     Dosage: 10 MG, 2X/DAY
     Route: 048
     Dates: start: 20160805
  17. INFLECTRA [Suspect]
     Active Substance: INFLIXIMAB-DYYB
     Indication: CROHN^S DISEASE
     Dosage: 5 MG/KG, UNK
     Route: 042
     Dates: start: 20160426, end: 20160609
  18. ALPRAZOLAM. [Suspect]
     Active Substance: ALPRAZOLAM
     Dosage: 0.25 MG, AS NEEDED IN THE EVENING
     Route: 048
     Dates: start: 201602
  19. ALPRAZOLAM. [Suspect]
     Active Substance: ALPRAZOLAM
     Dosage: 1 DF, UNK
     Dates: start: 20160804

REACTIONS (5)
  - Hepatic enzyme increased [Recovered/Resolved]
  - Cholecystitis [Unknown]
  - Abdominal pain upper [Unknown]
  - Vomiting [Unknown]
  - Transaminases increased [Recovered/Resolved]

NARRATIVE: CASE EVENT DATE: 20160728
